FAERS Safety Report 6578990-0 (Version None)
Quarter: 2010Q1

REPORT INFORMATION
  Report Type: 
  Country: None (occurrence: None)
  Receive Date: 20100212
  Receipt Date: 20100204
  Transmission Date: 20100710
  Serious: Yes (Hospitalization)
  Sender: FDA-Public Use
  Company Number: SE-BAYER-201014810GPV

PATIENT
  Sex: Male

DRUGS (3)
  1. BETAFERON [Suspect]
     Indication: MULTIPLE SCLEROSIS
     Route: 058
     Dates: start: 19970101
  2. BISOPROLOL [Concomitant]
     Indication: HYPERTENSION
     Route: 048
  3. SALURES [Concomitant]
     Indication: HYPERTENSION
     Route: 048

REACTIONS (2)
  - CLUSTER HEADACHE [None]
  - EYE DISORDER [None]
